FAERS Safety Report 6486562-1 (Version None)
Quarter: 2009Q4

REPORT INFORMATION
  Report Type: 
  Country: None (occurrence: None)
  Receive Date: 20091209
  Receipt Date: 20091209
  Transmission Date: 20100525
  Serious: Yes (Life-Threatening, Hospitalization)
  Sender: FDA-Public Use
  Company Number: None

PATIENT
  Age: 76 Year
  Sex: Male
  Weight: 78.9 kg

DRUGS (1)
  1. ZYPREXA [Suspect]
     Indication: AGITATION
     Dosage: 10 MG Q4HPRN AGITATION IM
     Route: 030
     Dates: start: 20091201, end: 20091208

REACTIONS (6)
  - ATRIAL FIBRILLATION [None]
  - CARDIAC ARREST [None]
  - CONFUSIONAL STATE [None]
  - DISORIENTATION [None]
  - RESPIRATORY ARREST [None]
  - RESPIRATORY DISTRESS [None]
